FAERS Safety Report 8840086 (Version 1)
Quarter: 2012Q4

REPORT INFORMATION
  Report Type: 
  Country: US (occurrence: US)
  Receive Date: 20121015
  Receipt Date: 20121015
  Transmission Date: 20130627
  Serious: Yes (Other)
  Sender: FDA-Public Use
  Company Number: US-ROCHE-CID000000002108082

PATIENT
  Sex: Female

DRUGS (8)
  1. AVASTIN [Suspect]
     Indication: BREAST CANCER FEMALE
     Route: 065
     Dates: start: 200605, end: 200701
  2. AVASTIN [Suspect]
     Route: 065
     Dates: start: 200708, end: 200710
  3. XELODA [Suspect]
     Indication: BREAST CANCER FEMALE
     Route: 065
     Dates: start: 200408, end: 200501
  4. CARBOPLATIN [Concomitant]
     Indication: BREAST CANCER FEMALE
     Route: 065
     Dates: start: 200408, end: 200501
  5. NAVELBINE [Concomitant]
     Route: 065
     Dates: start: 200501
  6. TAXOL [Concomitant]
     Route: 065
     Dates: start: 200012, end: 200102
  7. TAXOL [Concomitant]
     Route: 065
     Dates: start: 200605
  8. TAXOTERE [Concomitant]

REACTIONS (2)
  - Infection [Unknown]
  - Acute febrile neutrophilic dermatosis [Unknown]
